FAERS Safety Report 12710240 (Version 1)
Quarter: 2016Q3

REPORT INFORMATION
  Report Type: Report from Study
  Country: LU (occurrence: LU)
  Receive Date: 20160902
  Receipt Date: 20160902
  Transmission Date: 20161109
  Serious: Yes (Hospitalization, Other)
  Sender: FDA-Public Use
  Company Number: JP-BRISTOL-MYERS SQUIBB COMPANY-BMS-2016-061244

PATIENT
  Age: 38 Year
  Sex: Male

DRUGS (29)
  1. NIVOLUMAB [Suspect]
     Active Substance: NIVOLUMAB
     Dosage: 295.8 MG, UNK
     Route: 065
     Dates: start: 20150917, end: 20150917
  2. NIVOLUMAB [Suspect]
     Active Substance: NIVOLUMAB
     Dosage: 300.9 MG, UNK
     Route: 065
     Dates: start: 20151224, end: 20151224
  3. NIVOLUMAB [Suspect]
     Active Substance: NIVOLUMAB
     Dosage: 308.4 MG, UNK
     Route: 065
     Dates: start: 20160107, end: 20160107
  4. NIVOLUMAB [Suspect]
     Active Substance: NIVOLUMAB
     Dosage: 309 MG, UNK
     Route: 065
     Dates: start: 20160218, end: 20160218
  5. NIVOLUMAB [Suspect]
     Active Substance: NIVOLUMAB
     Dosage: 291.6 MG, UNK
     Route: 065
     Dates: start: 20160525, end: 20160525
  6. NIVOLUMAB [Suspect]
     Active Substance: NIVOLUMAB
     Dosage: 298.5 MG, UNK
     Route: 065
     Dates: start: 20160622, end: 20160622
  7. NIVOLUMAB [Suspect]
     Active Substance: NIVOLUMAB
     Dosage: 306.6 MG, UNK
     Route: 065
     Dates: start: 20150709, end: 20150709
  8. NIVOLUMAB [Suspect]
     Active Substance: NIVOLUMAB
     Dosage: 297 MG, UNK
     Route: 065
     Dates: start: 20150806, end: 20150806
  9. NIVOLUMAB [Suspect]
     Active Substance: NIVOLUMAB
     Dosage: 297 MG, UNK
     Route: 065
     Dates: start: 20151001, end: 20151001
  10. NIVOLUMAB [Suspect]
     Active Substance: NIVOLUMAB
     Dosage: 297 MG, UNK
     Route: 065
     Dates: start: 20151015, end: 20151015
  11. NIVOLUMAB [Suspect]
     Active Substance: NIVOLUMAB
     Dosage: 293.1 MG, UNK
     Route: 065
     Dates: start: 20160609, end: 20160609
  12. NIVOLUMAB [Suspect]
     Active Substance: NIVOLUMAB
     Indication: METASTATIC MALIGNANT MELANOMA
     Dosage: 313.8 MG, UNK
     Route: 042
     Dates: start: 20150625, end: 20150625
  13. NIVOLUMAB [Suspect]
     Active Substance: NIVOLUMAB
     Dosage: 300.9 MG, UNK
     Route: 065
     Dates: start: 20151210, end: 20151210
  14. NIVOLUMAB [Suspect]
     Active Substance: NIVOLUMAB
     Dosage: 306.6 MG, UNK
     Route: 065
     Dates: start: 20160121, end: 20160121
  15. NIVOLUMAB [Suspect]
     Active Substance: NIVOLUMAB
     Dosage: 304.8 MG, UNK
     Route: 065
     Dates: start: 20160303, end: 20160303
  16. NIVOLUMAB [Suspect]
     Active Substance: NIVOLUMAB
     Dosage: 294.3 MG, UNK
     Route: 065
     Dates: start: 20150820, end: 20150820
  17. NIVOLUMAB [Suspect]
     Active Substance: NIVOLUMAB
     Dosage: 293.1 MG, UNK
     Route: 065
     Dates: start: 20151029, end: 20151029
  18. NIVOLUMAB [Suspect]
     Active Substance: NIVOLUMAB
     Dosage: 306 MG, UNK
     Route: 065
     Dates: start: 20160204, end: 20160204
  19. NIVOLUMAB [Suspect]
     Active Substance: NIVOLUMAB
     Dosage: 313.8 MG, UNK
     Route: 065
     Dates: start: 20150723, end: 20150723
  20. NIVOLUMAB [Suspect]
     Active Substance: NIVOLUMAB
     Dosage: 296.4 MG, UNK
     Route: 065
     Dates: start: 20150903, end: 20150903
  21. NIVOLUMAB [Suspect]
     Active Substance: NIVOLUMAB
     Dosage: 294.6 MG, UNK
     Route: 065
     Dates: start: 20151112, end: 20151112
  22. NIVOLUMAB [Suspect]
     Active Substance: NIVOLUMAB
     Dosage: 304.5 MG, UNK
     Route: 065
     Dates: start: 20160317, end: 20160317
  23. NIVOLUMAB [Suspect]
     Active Substance: NIVOLUMAB
     Dosage: 292.5 MG, UNK
     Route: 065
     Dates: start: 20160428, end: 20160428
  24. NIVOLUMAB [Suspect]
     Active Substance: NIVOLUMAB
     Dosage: 301.2 MG, UNK
     Route: 065
     Dates: start: 20160707, end: 20160707
  25. NIVOLUMAB [Suspect]
     Active Substance: NIVOLUMAB
     Dosage: 300 MG, UNK
     Route: 065
     Dates: start: 20151126, end: 20151126
  26. NIVOLUMAB [Suspect]
     Active Substance: NIVOLUMAB
     Dosage: 300 MG, UNK
     Route: 065
     Dates: start: 20160330, end: 20160331
  27. NIVOLUMAB [Suspect]
     Active Substance: NIVOLUMAB
     Dosage: 304.8 MG, UNK
     Route: 065
     Dates: start: 20160413, end: 20160413
  28. NIVOLUMAB [Suspect]
     Active Substance: NIVOLUMAB
     Dosage: 288.6 MG, UNK
     Route: 065
     Dates: start: 20160512, end: 20160512
  29. NIVOLUMAB [Suspect]
     Active Substance: NIVOLUMAB
     Dosage: 301.2 MG, UNK
     Route: 065
     Dates: start: 20160720, end: 20160720

REACTIONS (2)
  - Headache [Recovered/Resolved]
  - Diarrhoea [Recovered/Resolved]

NARRATIVE: CASE EVENT DATE: 20160722
